FAERS Safety Report 20805299 (Version 2)
Quarter: 2022Q3

REPORT INFORMATION
  Report Type: Spontaneous
  Country: US (occurrence: US)
  Receive Date: 20220509
  Receipt Date: 20220816
  Transmission Date: 20221027
  Serious: Yes (Other)
  Sender: FDA-Public Use
  Company Number: US-BRISTOL-MYERS SQUIBB COMPANY-2022-032028

PATIENT
  Age: 75 Year
  Sex: Female
  Weight: 122 kg

DRUGS (14)
  1. REVLIMID [Suspect]
     Active Substance: LENALIDOMIDE
     Indication: B-cell lymphoma
     Dosage: DOSE : 15 MG;     FREQ : ONCE A DAY FOR 21 DAYS AND 7 DAYS OFF
     Route: 048
     Dates: start: 20220411
  2. ALLOPURINOL [Concomitant]
     Active Substance: ALLOPURINOL
  3. ASPIRIN [Concomitant]
     Active Substance: ASPIRIN
  4. ATIVAN [Concomitant]
     Active Substance: LORAZEPAM
  5. DICYCLOMINE HYDROCHLORIDE [Concomitant]
     Active Substance: DICYCLOMINE HYDROCHLORIDE
  6. OMEPRAZOLE [Concomitant]
     Active Substance: OMEPRAZOLE
  7. ONDANSETRON [Concomitant]
     Active Substance: ONDANSETRON
  8. DULOXETINE [Concomitant]
     Active Substance: DULOXETINE
  9. OXYCODONE [Concomitant]
     Active Substance: OXYCODONE
  10. PERCOCET [Concomitant]
     Active Substance: ACETAMINOPHEN\OXYCODONE HYDROCHLORIDE
  11. SERTRALINE [Concomitant]
     Active Substance: SERTRALINE HYDROCHLORIDE
  12. TEMAZEPAM [Concomitant]
     Active Substance: TEMAZEPAM
  13. ULORIC [Concomitant]
     Active Substance: FEBUXOSTAT
  14. XANAX [Concomitant]
     Active Substance: ALPRAZOLAM

REACTIONS (1)
  - Cytopenia [Unknown]
